FAERS Safety Report 24539699 (Version 1)
Quarter: 2024Q4

REPORT INFORMATION
  Report Type: Spontaneous
  Country: US (occurrence: None)
  Receive Date: 20241022
  Receipt Date: 20241022
  Transmission Date: 20250114
  Serious: No
  Sender: Public
  Company Number: None

PATIENT
  Age: 58 Year
  Sex: Male

DRUGS (1)
  1. PHENTERMINE HYDROCHLORIDE\TOPIRAMATE [Suspect]
     Active Substance: PHENTERMINE HYDROCHLORIDE\TOPIRAMATE
     Indication: Weight decreased
     Dates: start: 20240326, end: 20240520

REACTIONS (4)
  - Anxiety [None]
  - Arthralgia [None]
  - Arthritis [None]
  - Insomnia [None]

NARRATIVE: CASE EVENT DATE: 20240520
